FAERS Safety Report 12315848 (Version 2)
Quarter: 2016Q3

REPORT INFORMATION
  Report Type: Spontaneous
  Country: US (occurrence: US)
  Receive Date: 20160428
  Receipt Date: 20160803
  Transmission Date: 20161109
  Serious: Yes (Death, Hospitalization, Other)
  Sender: FDA-Public Use
  Company Number: US-UNITED THERAPEUTICS-UNT-2016-003189

PATIENT
  Age: 72 Year
  Sex: Female
  Weight: 51.7 kg

DRUGS (3)
  1. REMODULIN [Suspect]
     Active Substance: TREPROSTINIL
     Indication: PULMONARY HYPERTENSION
     Dosage: 0.037 ?G/KG, CONTINUING
     Route: 058
     Dates: start: 20131219
  2. LETAIRIS [Concomitant]
     Active Substance: AMBRISENTAN
     Indication: PRODUCT USED FOR UNKNOWN INDICATION
  3. ADCIRCA [Concomitant]
     Active Substance: TADALAFIL
     Indication: PRODUCT USED FOR UNKNOWN INDICATION

REACTIONS (18)
  - Haematemesis [Unknown]
  - Cystitis haemorrhagic [Unknown]
  - Acute respiratory failure [Unknown]
  - Urinary tract infection [Unknown]
  - Pneumonia aspiration [Fatal]
  - Constipation [Unknown]
  - Neutropenia [Unknown]
  - Hypophagia [Unknown]
  - Fluid overload [Unknown]
  - Diarrhoea [Unknown]
  - Ascites [Unknown]
  - Pulmonary oedema [Unknown]
  - Right ventricular failure [Unknown]
  - Pulmonary hypertension [Unknown]
  - Cholelithiasis [Unknown]
  - Diffuse large B-cell lymphoma [Fatal]
  - Gastritis [Unknown]
  - Fungal sepsis [Fatal]

NARRATIVE: CASE EVENT DATE: 2016
